FAERS Safety Report 15810908 (Version 3)
Quarter: 2019Q2

REPORT INFORMATION
  Report Type: Spontaneous
  Country: US (occurrence: US)
  Receive Date: 20190111
  Receipt Date: 20190426
  Transmission Date: 20190711
  Serious: Yes (Other)
  Sender: FDA-Public Use
  Company Number: US-ASTRAZENECA-2018SF68127

PATIENT
  Age: 893 Month
  Sex: Female
  Weight: 82.6 kg

DRUGS (4)
  1. CRESTOR [Suspect]
     Active Substance: ROSUVASTATIN CALCIUM
     Dosage: GENRIC
     Route: 048
  2. CEFTIN [Concomitant]
     Active Substance: CEFUROXIME AXETIL
     Indication: LUNG INFECTION
  3. CRESTOR [Suspect]
     Active Substance: ROSUVASTATIN CALCIUM
     Route: 048
  4. BRILINTA [Suspect]
     Active Substance: TICAGRELOR
     Indication: ARTERIAL STENT INSERTION
     Route: 048
     Dates: start: 20181204

REACTIONS (25)
  - Limb injury [Unknown]
  - Cerebrovascular accident [Unknown]
  - Lung infection [Recovering/Resolving]
  - Rales [Recovering/Resolving]
  - Brain hypoxia [Unknown]
  - Skin atrophy [Unknown]
  - Arthritis [Unknown]
  - Fatigue [Unknown]
  - Memory impairment [Unknown]
  - Sputum discoloured [Recovering/Resolving]
  - Nasal discomfort [Recovering/Resolving]
  - Hypertension [Unknown]
  - Hyperaesthesia [Unknown]
  - Arthralgia [Unknown]
  - Cerebral artery occlusion [Unknown]
  - Cough [Recovering/Resolving]
  - Pruritus genital [Unknown]
  - Myocardial infarction [Unknown]
  - Paranasal sinus hypersecretion [Recovering/Resolving]
  - Wheezing [Recovering/Resolving]
  - Arthropathy [Unknown]
  - Contusion [Unknown]
  - Ligament sprain [Unknown]
  - Autoimmune disorder [Unknown]
  - Nasopharyngitis [Unknown]

NARRATIVE: CASE EVENT DATE: 201812
